FAERS Safety Report 5298773-1 (Version None)
Quarter: 2007Q2

REPORT INFORMATION
  Report Type: 
  Country: None (occurrence: None)
  Receive Date: 20070417
  Receipt Date: 20070414
  Transmission Date: 20071010
  Serious: Yes (Death, Other)
  Sender: FDA-Public Use
  Company Number: US-BRISTOL-MYERS SQUIBB COMPANY-13749148

PATIENT
  Sex: Female

DRUGS (1)
  1. CARMUSTINE [Suspect]
     Indication: NEOPLASM MALIGNANT
     Dates: start: 20070215, end: 20070215

REACTIONS (4)
  - BACK PAIN [None]
  - CONVULSION [None]
  - DYSPNOEA [None]
  - SUDDEN DEATH [None]
